FAERS Safety Report 18035317 (Version 2)
Quarter: 2020Q3

REPORT INFORMATION
  Report Type: Other
  Country: US (occurrence: US)
  Receive Date: 20200717
  Receipt Date: 20200911
  Transmission Date: 20201103
  Serious: Yes (Other)
  Sender: FDA-Public Use
  Company Number: US-ROCHE-2642570

PATIENT
  Sex: Male

DRUGS (3)
  1. XELODA [Suspect]
     Active Substance: CAPECITABINE
     Indication: NEUROENDOCRINE CARCINOMA
     Dosage: TAKE 7 TABLETS (1050 MG TOTAL) BY MOUTH 2 TWO TIMES A DAY FOR 14 DAYS. TAKE FOR 14 DAYS AND THEN NON
     Route: 048
  2. TEMODAR [Concomitant]
     Active Substance: TEMOZOLOMIDE
  3. DEXAMETHASONE. [Suspect]
     Active Substance: DEXAMETHASONE
     Indication: PRODUCT USED FOR UNKNOWN INDICATION
     Route: 065

REACTIONS (3)
  - Intentional product use issue [Unknown]
  - Type 2 diabetes mellitus [Unknown]
  - Off label use [Unknown]
